FAERS Safety Report 6964810-9 (Version None)
Quarter: 2010Q3

REPORT INFORMATION
  Report Type: 
  Country: None (occurrence: None)
  Receive Date: 20100903
  Receipt Date: 20100826
  Transmission Date: 20110219
  Serious: Yes (Hospitalization)
  Sender: FDA-Public Use
  Company Number: CA-JNJFOC-20100809086

PATIENT
  Sex: Male
  Weight: 103 kg

DRUGS (6)
  1. REMICADE [Suspect]
     Indication: ANKYLOSING SPONDYLITIS
     Route: 042
  2. REMICADE [Suspect]
     Route: 042
  3. NAPROSYN [Concomitant]
  4. FOSAMAX [Concomitant]
  5. PANTOPRAZOLE [Concomitant]
  6. LASIX [Concomitant]

REACTIONS (3)
  - DIZZINESS [None]
  - FALL [None]
  - PARAPLEGIA [None]
